FAERS Safety Report 25062085 (Version 1)
Quarter: 2025Q1

REPORT INFORMATION
  Report Type: Spontaneous
  Country: US (occurrence: US)
  Receive Date: 20250311
  Receipt Date: 20250311
  Transmission Date: 20250409
  Serious: Yes (Other)
  Sender: COOPERSURGICAL
  Company Number: US-COOPERSURGICAL, INC.-2025CPS001734

PATIENT
  Age: 38 Year
  Sex: Female
  Weight: 95.238 kg

DRUGS (1)
  1. PARAGARD T 380A [Suspect]
     Active Substance: COPPER
     Indication: Contraception
     Route: 015
     Dates: start: 20131030, end: 20180201

REACTIONS (6)
  - Monoplegia [Not Recovered/Not Resolved]
  - Neuralgia [Not Recovered/Not Resolved]
  - Uterine pain [Not Recovered/Not Resolved]
  - Emotional disorder [Unknown]
  - Pelvic pain [Not Recovered/Not Resolved]
  - Off label use [Unknown]

NARRATIVE: CASE EVENT DATE: 20131030
